FAERS Safety Report 15699740 (Version 2)
Quarter: 2019Q3

REPORT INFORMATION
  Report Type: Report from Study
  Country: CN (occurrence: CN)
  Receive Date: 20181207
  Receipt Date: 20190816
  Transmission Date: 20191004
  Serious: Yes (Other)
  Sender: FDA-Public Use
  Company Number: CN-PFIZER INC-2018499916

PATIENT
  Age: 2 Year
  Sex: Male

DRUGS (2)
  1. DEXMEDETOMIDINE HYDROCHLORIDE. [Suspect]
     Active Substance: DEXMEDETOMIDINE HYDROCHLORIDE
     Indication: SEDATION
     Dosage: 2 UG/KG, SINGLE (SINGLE DOSE) (INTRANASAL ROUTE)
     Route: 045
     Dates: start: 2016, end: 2016
  2. KETAMINE [Suspect]
     Active Substance: KETAMINE
     Indication: SEDATION
     Dosage: 1 MG/KG, SINGLE (SINGLE DOSE) (INTRANASAL ROUTE)
     Route: 045
     Dates: start: 2016, end: 2016

REACTIONS (1)
  - Upper airway obstruction [Recovered/Resolved]

NARRATIVE: CASE EVENT DATE: 2016
